APPROVED DRUG PRODUCT: FELODIPINE
Active Ingredient: FELODIPINE
Strength: 10MG
Dosage Form/Route: TABLET, EXTENDED RELEASE;ORAL
Application: A091484 | Product #003
Applicant: WOCKHARDT BIO AG
Approved: Aug 15, 2012 | RLD: No | RS: No | Type: DISCN